FAERS Safety Report 5029888-0 (Version None)
Quarter: 2006Q2

REPORT INFORMATION
  Report Type: 
  Country: None (occurrence: None)
  Receive Date: 20060614
  Receipt Date: 20060518
  Transmission Date: 20061013
  Serious: Yes (Hospitalization, Other)
  Sender: FDA-Public Use
  Company Number: 200612789BWH

PATIENT
  Age: 66 Year
  Sex: Male
  Weight: 79.3795 kg

DRUGS (4)
  1. SORAFENIB [Suspect]
     Indication: RENAL CELL CARCINOMA STAGE UNSPECIFIED
     Dosage: SEE IMAGE
     Route: 048
     Dates: start: 20030422, end: 20030505
  2. SORAFENIB [Suspect]
     Indication: RENAL CELL CARCINOMA STAGE UNSPECIFIED
     Dosage: SEE IMAGE
     Route: 048
     Dates: start: 20030509, end: 20060515
  3. HYDROCORTISONE [Suspect]
     Indication: ADRENAL DISORDER
     Dates: start: 20030101
  4. CARTIA [DILTIAZEM HYDROCHLORIDE] [Concomitant]

REACTIONS (6)
  - APHAGIA [None]
  - CONSTIPATION [None]
  - GOUT [None]
  - OSTEONECROSIS [None]
  - RENAL FAILURE [None]
  - VOMITING [None]
